FAERS Safety Report 16757724 (Version 2)
Quarter: 2019Q3

REPORT INFORMATION
  Report Type: Report from Study
  Country: None (occurrence: CA)
  Receive Date: 20190830
  Receipt Date: 20190904
  Transmission Date: 20191005
  Serious: Yes (Other)
  Sender: FDA-Public Use
  Company Number: CA-ABBVIE-19K-028-2905974-00

PATIENT
  Sex: Female

DRUGS (1)
  1. HUMIRA [Suspect]
     Active Substance: ADALIMUMAB
     Indication: CROHN^S DISEASE
     Route: 058
     Dates: start: 20180627

REACTIONS (14)
  - Stomatitis [Unknown]
  - Gastrointestinal motility disorder [Not Recovered/Not Resolved]
  - Arthralgia [Not Recovered/Not Resolved]
  - Osteoarthritis [Unknown]
  - Skin hypertrophy [Not Recovered/Not Resolved]
  - Skin discolouration [Not Recovered/Not Resolved]
  - Acne [Recovered/Resolved]
  - Weight decreased [Unknown]
  - Food aversion [Recovered/Resolved]
  - Pruritus [Recovered/Resolved]
  - Pyoderma gangrenosum [Unknown]
  - Dry skin [Not Recovered/Not Resolved]
  - Decreased appetite [Unknown]
  - Blister [Unknown]

NARRATIVE: CASE EVENT DATE: 2018
